FAERS Safety Report 18051936 (Version 4)
Quarter: 2021Q1

REPORT INFORMATION
  Report Type: Other
  Country: US (occurrence: US)
  Receive Date: 20200721
  Receipt Date: 20210125
  Transmission Date: 20210419
  Serious: Yes (Other)
  Sender: FDA-Public Use
  Company Number: US-ACORDA-ACO_165568_2020

PATIENT
  Age: 44 Year
  Sex: Female

DRUGS (3)
  1. AMPYRA [Suspect]
     Active Substance: DALFAMPRIDINE
     Indication: MULTIPLE SCLEROSIS
     Dosage: 10 MILLIGRAM, BID (Q12H)
     Route: 065
     Dates: start: 20130117
  2. AMPYRA [Suspect]
     Active Substance: DALFAMPRIDINE
     Dosage: 10 MILLIGRAM, BID (Q12H)
     Route: 065
     Dates: start: 20200728
  3. GILENYA [Suspect]
     Active Substance: FINGOLIMOD HYDROCHLORIDE
     Indication: PRODUCT USED FOR UNKNOWN INDICATION
     Dosage: UNK
     Route: 065

REACTIONS (8)
  - Discomfort [Unknown]
  - Pain in extremity [Unknown]
  - Sensory disturbance [Unknown]
  - Product dose omission issue [Unknown]
  - Limb discomfort [Unknown]
  - Hypoaesthesia [Unknown]
  - Seizure [Unknown]
  - Therapy interrupted [Recovered/Resolved]

NARRATIVE: CASE EVENT DATE: 201912
